FAERS Safety Report 14204310 (Version 2)
Quarter: 2018Q1

REPORT INFORMATION
  Report Type: Report from Study
  Country: US (occurrence: US)
  Receive Date: 20171120
  Receipt Date: 20180112
  Transmission Date: 20180508
  Serious: Yes (Other)
  Sender: FDA-Public Use
  Company Number: US-PFIZER INC-2017314421

PATIENT
  Age: 48 Year
  Sex: Female

DRUGS (1)
  1. IBRANCE [Suspect]
     Active Substance: PALBOCICLIB
     Indication: BREAST CANCER
     Dosage: 75 MG, CYCLIC (DAILY; 3 WEEKS ON, 1 WEEK OFF)
     Route: 048
     Dates: start: 20170620, end: 20171029

REACTIONS (12)
  - Blood creatinine increased [Unknown]
  - Neutropenia [Recovering/Resolving]
  - Bone marrow failure [Unknown]
  - Nausea [Unknown]
  - Abdominal pain [Unknown]
  - Neoplasm progression [Unknown]
  - Leukopenia [Unknown]
  - Decreased appetite [Not Recovered/Not Resolved]
  - Anaemia [Not Recovered/Not Resolved]
  - Fatigue [Recovering/Resolving]
  - Neuropathy peripheral [Recovered/Resolved]
  - Gastritis [Unknown]

NARRATIVE: CASE EVENT DATE: 2017
